FAERS Safety Report 17549604 (Version 1)
Quarter: 2020Q1

REPORT INFORMATION
  Report Type: Spontaneous
  Country: US (occurrence: US)
  Receive Date: 20200316
  Receipt Date: 20200316
  Transmission Date: 20200409
  Serious: Yes (Other)
  Sender: FDA-Public Use
  Company Number: None

PATIENT
  Age: 34 Year
  Sex: Female
  Weight: 63 kg

DRUGS (3)
  1. MUCINEX DM MAXIMUM STRENGTH [Suspect]
     Active Substance: DEXTROMETHORPHAN HYDROBROMIDE\GUAIFENESIN
     Indication: COUGH
     Dosage: ?          QUANTITY:1 TABLET(S);OTHER FREQUENCY:ONCE AT NIGHT;?
     Route: 048
     Dates: start: 20200314, end: 20200314
  2. PROBIOTICS [Concomitant]
     Active Substance: PROBIOTICS NOS
  3. TURMERIC [Concomitant]
     Active Substance: HERBALS\TURMERIC

REACTIONS (19)
  - Pain [None]
  - Gait disturbance [None]
  - Confusional state [None]
  - Feeling hot [None]
  - Tremor [None]
  - Speech disorder [None]
  - Swelling face [None]
  - Palpitations [None]
  - Injury [None]
  - Depressed level of consciousness [None]
  - Loss of consciousness [None]
  - Fall [None]
  - Fatigue [None]
  - Somnolence [None]
  - Visual impairment [None]
  - Wheezing [None]
  - Joint swelling [None]
  - Dizziness [None]
  - Contusion [None]

NARRATIVE: CASE EVENT DATE: 20200314
